FAERS Safety Report 6199084-2 (Version None)
Quarter: 2009Q2

REPORT INFORMATION
  Report Type: 
  Country: None (occurrence: None)
  Receive Date: 20090519
  Receipt Date: 20090519
  Transmission Date: 20091009
  Serious: No
  Sender: FDA-Public Use
  Company Number: None

PATIENT
  Age: 52 Year
  Sex: Female
  Weight: 78 kg

DRUGS (2)
  1. VENLAFAXINE [Suspect]
     Indication: ANXIETY
     Dosage: 300 MG EVERY DAY PO
     Route: 048
     Dates: start: 20090313, end: 20090515
  2. VENLAFAXINE [Suspect]
     Indication: DEPRESSION
     Dosage: 300 MG EVERY DAY PO
     Route: 048
     Dates: start: 20090313, end: 20090515

REACTIONS (5)
  - AGITATION [None]
  - ANXIETY [None]
  - CONDITION AGGRAVATED [None]
  - DEPRESSION [None]
  - PRODUCT SUBSTITUTION ISSUE [None]
